FAERS Safety Report 5904466-7 (Version None)
Quarter: 2008Q3

REPORT INFORMATION
  Report Type: 
  Country: None (occurrence: None)
  Receive Date: 20080930
  Receipt Date: 20080930
  Transmission Date: 20090109
  Serious: Yes (Hospitalization)
  Sender: FDA-Public Use
  Company Number: None

PATIENT
  Sex: Female
  Weight: 100.33 kg

DRUGS (2)
  1. CARBOPLATIN [Suspect]
     Dosage: 350 MG
  2. TAXOL [Suspect]
     Dosage: 270 MG

REACTIONS (7)
  - ATELECTASIS [None]
  - DYSPNOEA [None]
  - FLANK PAIN [None]
  - LOBAR PNEUMONIA [None]
  - LUNG INFILTRATION [None]
  - NEUTROPHIL COUNT DECREASED [None]
  - SOFT TISSUE DISORDER [None]
